FAERS Safety Report 12186700 (Version 1)
Quarter: 2016Q1

REPORT INFORMATION
  Report Type: Spontaneous
  Country: US (occurrence: None)
  Receive Date: 20160316
  Receipt Date: 20160316
  Transmission Date: 20160526
  Serious: Yes (Hospitalization)
  Sender: FDA-Public Use
  Company Number: None

PATIENT
  Age: 70 Year
  Sex: Male
  Weight: 54.1 kg

DRUGS (1)
  1. PROCHLORPERAZINE. [Suspect]
     Active Substance: PROCHLORPERAZINE
     Indication: NAUSEA
     Route: 042
     Dates: start: 20160217, end: 20160217

REACTIONS (9)
  - Refusal of treatment by patient [None]
  - Speech disorder [None]
  - Meningitis [None]
  - Agitation [None]
  - Mental status changes [None]
  - Confusional state [None]
  - Serotonin syndrome [None]
  - Neuroleptic malignant syndrome [None]
  - Drug interaction [None]

NARRATIVE: CASE EVENT DATE: 20160217
